FAERS Safety Report 19133227 (Version 1)
Quarter: 2021Q2

REPORT INFORMATION
  Report Type: Spontaneous
  Country: US (occurrence: US)
  Receive Date: 20210414
  Receipt Date: 20210414
  Transmission Date: 20210717
  Serious: Yes (Death)
  Sender: FDA-Public Use
  Company Number: None

PATIENT
  Age: 58 Year
  Sex: Male

DRUGS (2)
  1. TOBRAMYCIN (56AMPS/28DAY) 300MG/5ML LUPIN PHARMACEUTICALS [Suspect]
     Active Substance: TOBRAMYCIN
     Indication: BRONCHIECTASIS
     Dosage: ?          OTHER FREQUENCY:BID X 28 DAYS;?
     Route: 055
     Dates: start: 20201119
  2. TOBRAMYCIN (56AMPS/28DAY) 300MG/5ML LUPIN PHARMACEUTICALS [Suspect]
     Active Substance: TOBRAMYCIN
     Indication: BACTERIAL INFECTION
     Dosage: ?          OTHER FREQUENCY:BID X 28 DAYS;?
     Route: 055
     Dates: start: 20201119

REACTIONS (2)
  - Acute respiratory failure [None]
  - Bronchitis [None]

NARRATIVE: CASE EVENT DATE: 20201217
